FAERS Safety Report 4695790-7 (Version None)
Quarter: 2005Q2

REPORT INFORMATION
  Report Type: 
  Country: None (occurrence: None)
  Receive Date: 20050621
  Receipt Date: 20050607
  Transmission Date: 20051028
  Serious: Yes (Death)
  Sender: FDA-Public Use
  Company Number: US-JNJFOC-20050503803

PATIENT
  Sex: Female
  Weight: 68.49 kg

DRUGS (4)
  1. DOXIL [Suspect]
     Dosage: X 2 CYCLES
     Route: 042
  2. HERCEPTIN [Concomitant]
     Route: 042
  3. HERCEPTIN [Concomitant]
     Indication: BREAST CANCER
     Route: 042
  4. PAIN MEDICATION [Concomitant]

REACTIONS (4)
  - BREAST CANCER METASTATIC [None]
  - CARDIAC PERFORATION [None]
  - MALIGNANT NEOPLASM PROGRESSION [None]
  - TUMOUR ULCERATION [None]
